FAERS Safety Report 11674880 (Version 1)
Quarter: 2015Q4

REPORT INFORMATION
  Report Type: Spontaneous
  Country: US (occurrence: US)
  Receive Date: 20151027
  Receipt Date: 20151027
  Transmission Date: 20160304
  Serious: No
  Sender: FDA-Public Use
  Company Number: US-ELI_LILLY_AND_COMPANY-US201008005350

PATIENT
  Sex: Female

DRUGS (1)
  1. FORTEO [Suspect]
     Active Substance: TERIPARATIDE
     Dosage: 20 UG, DAILY (1/D)
     Dates: start: 20100715, end: 20100812

REACTIONS (5)
  - Dyspnoea [Recovered/Resolved]
  - Arthralgia [Unknown]
  - Dysphonia [Recovered/Resolved]
  - Muscular weakness [Unknown]
  - Abdominal discomfort [Unknown]
